FAERS Safety Report 19036754 (Version 1)
Quarter: 2021Q1

REPORT INFORMATION
  Report Type: Spontaneous
  Country: TW (occurrence: TW)
  Receive Date: 20210322
  Receipt Date: 20210322
  Transmission Date: 20210420
  Serious: No
  Sender: FDA-Public Use
  Company Number: TW-ALKEM LABORATORIES LIMITED-US-ALKEM-2021-00164

PATIENT
  Age: 67 Year
  Sex: Female

DRUGS (2)
  1. ARIPIPRAZOLE. [Suspect]
     Active Substance: ARIPIPRAZOLE
     Indication: TREMOR
     Dosage: 10 MILLIGRAM, QD
     Route: 065
  2. ARIPIPRAZOLE. [Suspect]
     Active Substance: ARIPIPRAZOLE
     Dosage: 15 MILLIGRAM, QD
     Route: 065

REACTIONS (2)
  - Condition aggravated [Recovering/Resolving]
  - Dyskinesia [Recovering/Resolving]
